FAERS Safety Report 7049158-9 (Version None)
Quarter: 2010Q4

REPORT INFORMATION
  Report Type: 
  Country: None (occurrence: None)
  Receive Date: 20101018
  Receipt Date: 20101004
  Transmission Date: 20110411
  Serious: Yes (Hospitalization)
  Sender: FDA-Public Use
  Company Number: PHHY2010FR32981

PATIENT
  Sex: Female
  Weight: 64 kg

DRUGS (2)
  1. EXFORGE [Suspect]
     Dosage: TABLET (160/5 MG), QD
     Route: 048
     Dates: start: 20100301, end: 20100430
  2. BONIVA [Concomitant]
     Dosage: 1 DF, QD

REACTIONS (6)
  - CREPITATIONS [None]
  - GENERALISED OEDEMA [None]
  - HYPONATRAEMIA [None]
  - LOCALISED OEDEMA [None]
  - OEDEMA GENITAL [None]
  - OEDEMA PERIPHERAL [None]
